FAERS Safety Report 10525285 (Version 1)
Quarter: 2014Q4

REPORT INFORMATION
  Report Type: Spontaneous
  Country: US (occurrence: None)
  Receive Date: 20141015
  Receipt Date: 20141015
  Transmission Date: 20150528
  Serious: Yes (Disabling)
  Sender: FDA-Public Use
  Company Number: None

PATIENT
  Age: 41 Year
  Sex: Male
  Weight: 90.72 kg

DRUGS (1)
  1. HUMIRA [Suspect]
     Active Substance: ADALIMUMAB
     Indication: PSORIASIS
     Dosage: ONE PEN BI-WEEKLY GIVEN INTO/UNDER THE SKIN
     Dates: start: 2009, end: 201405

REACTIONS (1)
  - Tuberculosis [None]

NARRATIVE: CASE EVENT DATE: 20140606
